APPROVED DRUG PRODUCT: TRIAMCINOLONE ACETONIDE
Active Ingredient: TRIAMCINOLONE ACETONIDE
Strength: 0.025%
Dosage Form/Route: CREAM;TOPICAL
Application: A087797 | Product #001
Applicant: ALPHARMA US PHARMACEUTICALS DIVISION
Approved: Jun 7, 1982 | RLD: No | RS: No | Type: DISCN